FAERS Safety Report 14250416 (Version 1)
Quarter: 2017Q4

REPORT INFORMATION
  Report Type: Spontaneous
  Country: US (occurrence: US)
  Receive Date: 20171205
  Receipt Date: 20171205
  Transmission Date: 20180321
  Serious: No
  Sender: FDA-Public Use
  Company Number: US-TEVA-769457ACC

PATIENT
  Sex: Female

DRUGS (1)
  1. ALPRAZOLAM. [Suspect]
     Active Substance: ALPRAZOLAM
     Indication: BLOOD PRESSURE ABNORMAL
     Dates: start: 2009

REACTIONS (3)
  - Fatigue [Recovered/Resolved]
  - Off label use [Unknown]
  - Intentional product use issue [Unknown]
